FAERS Safety Report 8817787 (Version 3)
Quarter: 2014Q1

REPORT INFORMATION
  Report Type: Spontaneous
  Country: JP (occurrence: JP)
  Receive Date: 20121001
  Receipt Date: 20140217
  Transmission Date: 20141002
  Serious: Yes (Hospitalization, Other)
  Sender: FDA-Public Use
  Company Number: PHHY2012JP082354

PATIENT
  Age: 61 Year
  Sex: Female

DRUGS (4)
  1. VOLTAREN [Suspect]
     Indication: OSTEOPOROSIS
     Route: 054
  2. VOLTAREN SR [Suspect]
     Indication: OSTEOPOROSIS
     Dosage: 37.5 MG, BID
     Dates: start: 20120528, end: 20120606
  3. PREDNISOLONE [Concomitant]
     Dosage: UNK UKN, UNK
     Route: 048
  4. CYCLOPHOSPHAMIDE [Concomitant]
     Dosage: UNK UKN, UNK

REACTIONS (11)
  - Gastrointestinal perforation [Recovering/Resolving]
  - Large intestine perforation [Recovering/Resolving]
  - Perforated ulcer [Unknown]
  - Abdominal pain lower [Unknown]
  - Diarrhoea [Unknown]
  - Post procedural complication [Unknown]
  - Peritoneal abscess [Recovering/Resolving]
  - Sepsis [Recovering/Resolving]
  - Fungal infection [Recovering/Resolving]
  - Peritonitis [Recovering/Resolving]
  - Thrombosis [Recovering/Resolving]
